FAERS Safety Report 4730607-3 (Version None)
Quarter: 2005Q3

REPORT INFORMATION
  Report Type: 
  Country: None (occurrence: None)
  Receive Date: 20050725
  Receipt Date: 20050314
  Transmission Date: 20060218
  Serious: No
  Sender: FDA-Public Use
  Company Number: USA050393183

PATIENT
  Age: 6 Year
  Sex: Male

DRUGS (2)
  1. STRATTERA [Suspect]
     Dates: start: 20040101
  2. ABILIFY [Concomitant]

REACTIONS (2)
  - ABNORMAL BEHAVIOUR [None]
  - MOOD SWINGS [None]
